FAERS Safety Report 6304018-3 (Version None)
Quarter: 2009Q3

REPORT INFORMATION
  Report Type: 
  Country: None (occurrence: None)
  Receive Date: 20090810
  Receipt Date: 20090729
  Transmission Date: 20100115
  Serious: Yes (Other)
  Sender: FDA-Public Use
  Company Number: US-PFIZER INC-2009248823

PATIENT
  Sex: Female
  Weight: 68.027 kg

DRUGS (3)
  1. CHANTIX [Suspect]
     Indication: SMOKING CESSATION THERAPY
     Dosage: 1 MG, 2X/DAY
     Route: 048
     Dates: start: 20090720, end: 20090728
  2. ALL OTHER THERAPEUTIC PRODUCTS [Concomitant]
     Indication: CONVULSION
     Dosage: UNK
  3. ALL OTHER THERAPEUTIC PRODUCTS [Concomitant]
     Indication: BLOOD CHOLESTEROL INCREASED
     Dosage: UNK

REACTIONS (3)
  - FEELING DRUNK [None]
  - GAIT DISTURBANCE [None]
  - VISUAL IMPAIRMENT [None]
